FAERS Safety Report 7218425-8 (Version None)
Quarter: 2011Q1

REPORT INFORMATION
  Report Type: 
  Country: None (occurrence: None)
  Receive Date: 20110110
  Receipt Date: 20101230
  Transmission Date: 20110831
  Serious: Yes (Other)
  Sender: FDA-Public Use
  Company Number: US-PFIZER INC-2010182262

PATIENT
  Sex: Female
  Weight: 65.76 kg

DRUGS (2)
  1. EFFEXOR [Suspect]
     Indication: DEPRESSION
  2. EFFEXOR [Suspect]
     Indication: ANXIETY
     Dosage: 75 MG, DAILY
     Route: 048
     Dates: start: 20100927, end: 20101101

REACTIONS (2)
  - CARPAL TUNNEL SYNDROME [None]
  - HYPOAESTHESIA [None]
